FAERS Safety Report 10467994 (Version 2)
Quarter: 2014Q4

REPORT INFORMATION
  Report Type: Spontaneous
  Country: BR (occurrence: BR)
  Receive Date: 20140922
  Receipt Date: 20141001
  Transmission Date: 20150528
  Serious: Yes (Hospitalization, Other)
  Sender: FDA-Public Use
  Company Number: BR-PFIZER INC-2014260707

PATIENT
  Age: 33 Year
  Sex: Female
  Weight: 73 kg

DRUGS (2)
  1. DOSTINEX [Suspect]
     Active Substance: CABERGOLINE
     Indication: BLOOD PROLACTIN INCREASED
  2. DOSTINEX [Suspect]
     Active Substance: CABERGOLINE
     Indication: PITUITARY TUMOUR
     Dosage: 1 MG, 2X/WEEK (TUESDAY AND THURSDAY)
     Dates: start: 2013

REACTIONS (5)
  - Chest pain [Recovered/Resolved]
  - Cardiac disorder [Unknown]
  - Tachycardia [Recovered/Resolved]
  - Tremor [Unknown]
  - Stress [Unknown]

NARRATIVE: CASE EVENT DATE: 201312
